FAERS Safety Report 6571517-9 (Version None)
Quarter: 2010Q1

REPORT INFORMATION
  Report Type: 
  Country: None (occurrence: None)
  Receive Date: 20100205
  Receipt Date: 20100127
  Transmission Date: 20100710
  Serious: Yes (Hospitalization)
  Sender: FDA-Public Use
  Company Number: FR-SOLVAY-00210000622

PATIENT
  Age: 30763 Day
  Sex: Female

DRUGS (3)
  1. KARDEGIC [Concomitant]
     Indication: DRUG USE FOR UNKNOWN INDICATION
     Dosage: DAILY DOSE:  UNKNOWN, 75 MILLIGRAM(S).
     Route: 065
  2. COVERSYL NOS [Suspect]
     Indication: DRUG USE FOR UNKNOWN INDICATION
     Dosage: DAILY DOSE:  UNKNOWN
     Route: 048
     Dates: end: 20080328
  3. EUPRESSYL [Suspect]
     Indication: DRUG USE FOR UNKNOWN INDICATION
     Dosage: DAILY DOSE:  UNKNOWN
     Route: 048
     Dates: end: 20080328

REACTIONS (10)
  - ACIDOSIS HYPERCHLORAEMIC [None]
  - ANAEMIA [None]
  - DYSPNOEA EXERTIONAL [None]
  - EOSINOPHILIA [None]
  - EYE PAIN [None]
  - GENERAL PHYSICAL HEALTH DETERIORATION [None]
  - HYPERKALAEMIA [None]
  - PHOTOPHOBIA [None]
  - PRURITUS [None]
  - VISION BLURRED [None]
